FAERS Safety Report 18395547 (Version 2)
Quarter: 2020Q4

REPORT INFORMATION
  Report Type: Spontaneous
  Country: DE (occurrence: DE)
  Receive Date: 20201017
  Receipt Date: 20201130
  Transmission Date: 20210114
  Serious: Yes (Death, Hospitalization)
  Sender: FDA-Public Use
  Company Number: DE-ACCORD-205285

PATIENT
  Age: 55 Year
  Sex: Female
  Weight: 81.3 kg

DRUGS (17)
  1. CYCLOPHOSPHAMIDE/CYCLOPHOSPHAMIDE MONOHYDRATE [Suspect]
     Active Substance: CYCLOPHOSPHAMIDE
     Indication: PLASMA CELL MYELOMA
     Dosage: INJECTION FOR INFUSION
     Route: 042
     Dates: start: 20181121, end: 20181123
  2. DEXAMETHASONE. [Suspect]
     Active Substance: DEXAMETHASONE
     Indication: PLASMA CELL MYELOMA
     Dosage: 40 MILLIGRAM DAILY
     Dates: start: 20200423, end: 20200426
  3. DOXORUBICIN [Suspect]
     Active Substance: DOXORUBICIN
     Indication: PLASMA CELL MYELOMA
     Dosage: 10 MG MILLIGRAM DAILY
     Dates: start: 20200423, end: 20200426
  4. NEUPOGEN [Concomitant]
     Active Substance: FILGRASTIM
     Dosage: 30 MIU E
     Dates: start: 20200423, end: 20200423
  5. ETOPOSIDE. [Suspect]
     Active Substance: ETOPOSIDE
     Indication: PLASMA CELL MYELOMA
     Dates: start: 20200423, end: 20200426
  6. BORTEZOMIBE [Suspect]
     Active Substance: BORTEZOMIB
     Indication: PLASMA CELL MYELOMA
     Dosage: D1 + D4
     Dates: start: 20200423, end: 20200426
  7. CAELYX [Suspect]
     Active Substance: DOXORUBICIN HYDROCHLORIDE
     Indication: PLASMA CELL MYELOMA
     Route: 065
     Dates: start: 20200423, end: 20200426
  8. NEUPOGEN [Concomitant]
     Active Substance: FILGRASTIM
     Dosage: 30 MIU E
     Dates: start: 20200317, end: 20200319
  9. CYCLOPHOSPHAMIDE/CYCLOPHOSPHAMIDE MONOHYDRATE [Suspect]
     Active Substance: CYCLOPHOSPHAMIDE
     Indication: PLASMA CELL MYELOMA
     Dosage: 400 MG/M2 DAILY,INJECTION FOR INFUSION
     Route: 042
     Dates: start: 20200423, end: 20200426
  10. CISPLATIN. [Suspect]
     Active Substance: CISPLATIN
     Indication: PLASMA CELL MYELOMA
     Dosage: 10 MG/M2 DAILY
     Dates: start: 20200423, end: 20200426
  11. FLUDARABINE/FLUDARABINE PHOSPHATE [Suspect]
     Active Substance: FLUDARABINE PHOSPHATE
     Indication: PLASMA CELL MYELOMA
     Dosage: INJECTION FOR INFUSION
     Route: 042
     Dates: start: 20181121, end: 20181123
  12. NEUPOGEN [Concomitant]
     Active Substance: FILGRASTIM
     Dosage: 30 MIU E
     Dates: start: 20200402, end: 20200404
  13. NEUPOGEN [Concomitant]
     Active Substance: FILGRASTIM
     Dosage: 48 MIU E,
     Dates: start: 20200422, end: 20200423
  14. THALIDOMIDE [Suspect]
     Active Substance: THALIDOMIDE
     Indication: PLASMA CELL MYELOMA
     Dosage: DAILY,100 MILLIGRAM DAILY, IND 44.320, NDA 020785
     Route: 048
     Dates: start: 20200423, end: 20200426
  15. SULFAMETHOXAZOLE/TRIMETHOPRIM [Concomitant]
     Active Substance: SULFAMETHOXAZOLE\TRIMETHOPRIM
     Indication: INFECTION PROPHYLAXIS
     Route: 048
     Dates: start: 20060710, end: 20200424
  16. POTASSIUM [Concomitant]
     Active Substance: POTASSIUM
     Indication: HYPOKALAEMIA
     Dates: start: 20200427, end: 20200427
  17. TRIMETHOPRIM. [Concomitant]
     Active Substance: TRIMETHOPRIM
     Indication: INFECTION PROPHYLAXIS
     Route: 048
     Dates: start: 20060710, end: 20200424

REACTIONS (3)
  - Septic shock [Fatal]
  - Off label use [Unknown]
  - Pneumonia [Fatal]

NARRATIVE: CASE EVENT DATE: 20200427
